FAERS Safety Report 11735167 (Version 1)
Quarter: 2015Q4

REPORT INFORMATION
  Report Type: Spontaneous
  Country: ES (occurrence: ES)
  Receive Date: 20151113
  Receipt Date: 20151113
  Transmission Date: 20160304
  Serious: Yes (Death, Hospitalization, Other)
  Sender: FDA-Public Use
  Company Number: ES-TEVA-606861ISR

PATIENT
  Age: 80 Year
  Sex: Female

DRUGS (3)
  1. ENALAPRIL / HIDROCLOROTIAZIDA RATIOPHARM 20 MG/12,5 MG COMPRIMIDOS EFG [Suspect]
     Active Substance: ENALAPRIL MALEATE\HYDROCHLOROTHIAZIDE
     Indication: HYPERTENSION
     Dosage: 1 DOSAGE FORMS DAILY;
     Route: 048
     Dates: end: 20151012
  2. SIMVASTATINA RATIO 20 MG COMPRIMIDOS RECUBIERTOS CON PELICULA EFG, 28 [Suspect]
     Active Substance: SIMVASTATIN
     Indication: HYPERLIPIDAEMIA
     Dosage: 20 MILLIGRAM DAILY;
     Route: 048
     Dates: start: 20110131, end: 20151012
  3. BISOPROLOL RATIOPHARM 10 MG COMPRIMIDOS EFG, 30 COMPRIMIDOS [Suspect]
     Active Substance: BISOPROLOL
     Indication: CARDIOVASCULAR DISORDER
     Dosage: 10 MILLIGRAM DAILY;
     Route: 048
     Dates: end: 20151012

REACTIONS (3)
  - Systemic inflammatory response syndrome [Unknown]
  - Organ failure [Fatal]
  - Pancreatitis acute [Fatal]

NARRATIVE: CASE EVENT DATE: 20151007
